FAERS Safety Report 25073113 (Version 2)
Quarter: 2025Q1

REPORT INFORMATION
  Report Type: Spontaneous
  Country: US (occurrence: US)
  Receive Date: 20250313
  Receipt Date: 20250321
  Transmission Date: 20250408
  Serious: No
  Sender: BIOGEN
  Company Number: US-BIOGEN-2023BI01240297

PATIENT
  Age: 49 Year
  Sex: Female

DRUGS (4)
  1. VUMERITY [Suspect]
     Active Substance: DIROXIMEL FUMARATE
     Indication: Multiple sclerosis
     Dosage: STARTING DOSE
     Route: 050
     Dates: start: 20220916
  2. VUMERITY [Suspect]
     Active Substance: DIROXIMEL FUMARATE
     Route: 050
     Dates: start: 20250120
  3. VUMERITY [Suspect]
     Active Substance: DIROXIMEL FUMARATE
     Dosage: MAINTENANCE DOSE
     Route: 050
  4. CASEIN\DIETARY SUPPLEMENT\THEANINE [Concomitant]
     Active Substance: CASEIN\DIETARY SUPPLEMENT\THEANINE
     Route: 050
     Dates: start: 20250113

REACTIONS (13)
  - Treatment failure [Unknown]
  - Disturbance in attention [Not Recovered/Not Resolved]
  - Chills [Not Recovered/Not Resolved]
  - Visual impairment [Not Recovered/Not Resolved]
  - Dry mouth [Not Recovered/Not Resolved]
  - Gait disturbance [Not Recovered/Not Resolved]
  - Weight decreased [Not Recovered/Not Resolved]
  - Yellow skin [Not Recovered/Not Resolved]
  - Illness [Not Recovered/Not Resolved]
  - Vitamin D deficiency [Unknown]
  - Musculoskeletal stiffness [Unknown]
  - Cough [Unknown]
  - Flushing [Recovered/Resolved]

NARRATIVE: CASE EVENT DATE: 20250120
